FAERS Safety Report 5126900-5 (Version None)
Quarter: 2006Q3

REPORT INFORMATION
  Report Type: 
  Country: None (occurrence: None)
  Receive Date: 20060828
  Receipt Date: 20051220
  Transmission Date: 20061208
  Serious: Yes (Other)
  Sender: FDA-Public Use
  Company Number: 249478

PATIENT
  Sex: Female

DRUGS (2)
  1. VAGIFEM [Suspect]
     Indication: VULVOVAGINAL DRYNESS
     Dosage: 1 TAB, BIW,VAGINAL
     Route: 067
     Dates: start: 20051001, end: 20051218
  2. ALLEGRA [Concomitant]

REACTIONS (1)
  - HYPERSENSITIVITY [None]
